FAERS Safety Report 19487238 (Version 1)
Quarter: 2021Q3

REPORT INFORMATION
  Report Type: Spontaneous
  Country: US (occurrence: US)
  Receive Date: 20210702
  Receipt Date: 20210702
  Transmission Date: 20211014
  Serious: Yes (Hospitalization, Other)
  Sender: FDA-Public Use
  Company Number: US-MYLANLABS-2021M1038734

PATIENT
  Age: 54 Year
  Sex: Male

DRUGS (2)
  1. AMIODARONE [Suspect]
     Active Substance: AMIODARONE
     Indication: ATRIAL FIBRILLATION
     Dosage: 700 MILLIGRAM, QD, LONG TERM THERAPY
     Route: 065
  2. SOTALOL. [Concomitant]
     Active Substance: SOTALOL
     Indication: ATRIAL FIBRILLATION
     Dosage: UNK
     Route: 065

REACTIONS (6)
  - Organising pneumonia [Recovered/Resolved]
  - Haemoptysis [Recovered/Resolved]
  - Pneumonia lipoid [Recovered/Resolved]
  - Weight decreased [Unknown]
  - Pleural effusion [Recovered/Resolved]
  - Pneumothorax [Recovered/Resolved]
